FAERS Safety Report 24942195 (Version 2)
Quarter: 2025Q1

REPORT INFORMATION
  Report Type: Spontaneous
  Country: RS (occurrence: RS)
  Receive Date: 20250207
  Receipt Date: 20250211
  Transmission Date: 20250408
  Serious: Yes (Hospitalization)
  Sender: PFIZER
  Company Number: RS-PFIZER INC-PV202500013432

PATIENT
  Age: 16 Year
  Sex: Male
  Weight: 91.5 kg

DRUGS (4)
  1. NGENLA [Suspect]
     Active Substance: SOMATROGON-GHLA
     Indication: Hypopituitarism
     Dosage: 60 MG, WEEKLY
     Route: 058
     Dates: start: 20241004, end: 20250130
  2. NGENLA [Suspect]
     Active Substance: SOMATROGON-GHLA
     Indication: Growth hormone deficiency
  3. LEVOTHYROXINE SODIUM [Concomitant]
     Active Substance: LEVOTHYROXINE SODIUM
     Indication: Central hypothyroidism
     Route: 048
  4. TESTOSTERONE [Concomitant]
     Active Substance: TESTOSTERONE
     Indication: Secondary hypogonadism
     Dosage: 100 MG, MONTHLY
     Route: 030
     Dates: start: 20250104

REACTIONS (1)
  - Epiphysiolysis [Recovering/Resolving]

NARRATIVE: CASE EVENT DATE: 20250130
